FAERS Safety Report 25214538 (Version 3)
Quarter: 2025Q2

REPORT INFORMATION
  Report Type: Spontaneous
  Country: JP (occurrence: JP)
  Receive Date: 20250418
  Receipt Date: 20250528
  Transmission Date: 20250717
  Serious: Yes (Hospitalization, Other)
  Sender: BRISTOL-MYERS SQUIBB COMPANY
  Company Number: JP-TAIHO-2025-003946

PATIENT
  Age: 9 Decade

DRUGS (2)
  1. ABRAXANE [Suspect]
     Active Substance: PACLITAXEL
     Indication: Pancreatic carcinoma
     Route: 041
     Dates: start: 20250213, end: 20250310
  2. GEMCITABINE HYDROCHLORIDE [Suspect]
     Active Substance: GEMCITABINE HYDROCHLORIDE
     Indication: Pancreatic carcinoma
     Dates: start: 20250213, end: 20250310

REACTIONS (2)
  - White blood cell count decreased [Recovered/Resolved]
  - Large intestinal haemorrhage [Recovered/Resolved]

NARRATIVE: CASE EVENT DATE: 20250312
